FAERS Safety Report 18866895 (Version 3)
Quarter: 2021Q1

REPORT INFORMATION
  Report Type: Report from Study
  Country: AU (occurrence: AU)
  Receive Date: 20210209
  Receipt Date: 20210330
  Transmission Date: 20210420
  Serious: Yes (Hospitalization, Other)
  Sender: FDA-Public Use
  Company Number: AU-BRISTOL-MYERS SQUIBB COMPANY-BMS-2021-010944

PATIENT
  Age: 82 Year
  Sex: Female
  Weight: 57.3 kg

DRUGS (20)
  1. GEMCITABINE HYDROCHLORIDE. [Suspect]
     Active Substance: GEMCITABINE HYDROCHLORIDE
     Indication: TRANSITIONAL CELL CARCINOMA
     Dosage: 1590 MILLIGRAM
     Route: 042
     Dates: start: 20201207, end: 20201214
  2. POTASSIUM CHLORIDE. [Concomitant]
     Active Substance: POTASSIUM CHLORIDE
     Indication: PRODUCT USED FOR UNKNOWN INDICATION
     Dosage: 14 MILLIMOLE
     Route: 065
     Dates: start: 202012
  3. POTASSIUM CHLORIDE. [Concomitant]
     Active Substance: POTASSIUM CHLORIDE
     Dosage: 600 MILLIGRAM
     Route: 065
     Dates: start: 202012
  4. ONDANSETRON [Concomitant]
     Active Substance: ONDANSETRON
     Indication: PRODUCT USED FOR UNKNOWN INDICATION
     Dosage: 8 MILLIGRAM
     Route: 065
     Dates: start: 20201212
  5. PANADOL [Concomitant]
     Active Substance: ACETAMINOPHEN
     Indication: PRODUCT USED FOR UNKNOWN INDICATION
     Dosage: 1330 MILLIGRAM
     Route: 065
     Dates: start: 20201010
  6. PEGFILGRASTIM [Concomitant]
     Active Substance: PEGFILGRASTIM
     Indication: PRODUCT USED FOR UNKNOWN INDICATION
     Dosage: 6 MILLIGRAM
     Route: 065
     Dates: start: 20201208
  7. PREDNISOLONE. [Concomitant]
     Active Substance: PREDNISOLONE
     Indication: ADVERSE EVENT
     Dosage: 25 MILLIGRAM
     Route: 065
     Dates: start: 20210116
  8. SEVREDOL [Concomitant]
     Active Substance: MORPHINE
     Indication: ADVERSE EVENT
     Dosage: 10 MILLIGRAM
     Route: 065
     Dates: start: 202012
  9. PREDNISOLONE. [Concomitant]
     Active Substance: PREDNISOLONE
     Dosage: 12.5 MILLIGRAM
     Route: 065
     Dates: start: 20210125
  10. METOCLOPRAMIDE. [Concomitant]
     Active Substance: METOCLOPRAMIDE
     Indication: PRODUCT USED FOR UNKNOWN INDICATION
     Dosage: 10 MILLIGRAM
     Route: 065
     Dates: start: 202011
  11. PARACETAMOL [Concomitant]
     Active Substance: ACETAMINOPHEN
     Indication: PRODUCT USED FOR UNKNOWN INDICATION
     Dosage: 1000 MILLIGRAM
     Route: 065
     Dates: start: 20201210
  12. NIVOLUMAB [Suspect]
     Active Substance: NIVOLUMAB
     Indication: TRANSITIONAL CELL CARCINOMA
     Dosage: 360 MILLIGRAM
     Route: 042
     Dates: start: 20201207, end: 20201207
  13. DOCUSATE;SENNA [Concomitant]
     Active Substance: DOCUSATE\SENNOSIDES
     Indication: PRODUCT USED FOR UNKNOWN INDICATION
     Dosage: 2 TAB
     Route: 065
     Dates: start: 202012
  14. CISPLATIN. [Suspect]
     Active Substance: CISPLATIN
     Indication: TRANSITIONAL CELL CARCINOMA
     Dosage: 111.3 MILLIGRAM
     Route: 042
     Dates: start: 20201207, end: 20201207
  15. BUPRENORPHINE. [Concomitant]
     Active Substance: BUPRENORPHINE
     Indication: ADVERSE EVENT
     Dosage: 200 MICROGRAM
     Route: 065
     Dates: start: 202012
  16. MOVICOL [Concomitant]
     Active Substance: POLYETHYLENE GLYCOL 3350\POTASSIUM CHLORIDE\SODIUM BICARBONATE\SODIUM CHLORIDE
     Indication: PRODUCT USED FOR UNKNOWN INDICATION
     Dosage: 2 SATCHETS
     Route: 065
     Dates: start: 202012
  17. METOPROLOL. [Concomitant]
     Active Substance: METOPROLOL
     Indication: ADVERSE EVENT
     Dosage: 25 MILLIGRAM
     Route: 065
     Dates: start: 20210101
  18. MAGNESIUM ASPARTATE [Concomitant]
     Active Substance: MAGNESIUM ASPARTATE
     Indication: PRODUCT USED FOR UNKNOWN INDICATION
     Dosage: 1000 MILLIGRAM
     Route: 065
     Dates: start: 202012
  19. OXYCODONE [Concomitant]
     Active Substance: OXYCODONE
     Indication: PRODUCT USED FOR UNKNOWN INDICATION
     Dosage: 10 MILLIGRAM
     Route: 065
     Dates: start: 20201015, end: 202012
  20. FENTANYL TRANSDERMAL SYSTEM [Concomitant]
     Active Substance: FENTANYL
     Indication: PRODUCT USED FOR UNKNOWN INDICATION
     Dosage: 37 MICROGRAM
     Route: 065
     Dates: start: 20201204, end: 202012

REACTIONS (2)
  - Acute kidney injury [Recovered/Resolved]
  - Urosepsis [Recovered/Resolved]

NARRATIVE: CASE EVENT DATE: 20201219
